FAERS Safety Report 7356529-X (Version None)
Quarter: 2011Q1

REPORT INFORMATION
  Report Type: 
  Country: None (occurrence: None)
  Receive Date: 20110316
  Receipt Date: 20110302
  Transmission Date: 20110831
  Serious: Yes (Other)
  Sender: FDA-Public Use
  Company Number: PHHY2011US16456

PATIENT
  Sex: Male

DRUGS (9)
  1. FUROSEMIDE [Concomitant]
     Dosage: 40 MG, DAILY
  2. OMEPRAZOLE [Concomitant]
  3. NYSTATIN [Concomitant]
  4. EXJADE [Suspect]
     Indication: MYELODYSPLASTIC SYNDROME
  5. EXJADE [Suspect]
     Indication: IRON OVERLOAD
     Dosage: 1500 MG, DAILY
     Route: 048
     Dates: start: 20110118, end: 20110223
  6. BACTRIM [Concomitant]
  7. UROXATRAL [Concomitant]
     Dosage: 10 MG, DAILY
     Route: 048
  8. METOPROLOL SUCCINATE [Concomitant]
     Dosage: 50 MG, DAILY
  9. PREDNISONE [Concomitant]
     Indication: ARTHRALGIA
     Dosage: 2.5 MG, DAILY

REACTIONS (16)
  - RENAL IMPAIRMENT [None]
  - FLUID OVERLOAD [None]
  - CHEST DISCOMFORT [None]
  - CHEST PAIN [None]
  - DYSPNOEA [None]
  - COUGH [None]
  - HAEMATOCRIT DECREASED [None]
  - HYPERHIDROSIS [None]
  - DECREASED APPETITE [None]
  - PLEURAL EFFUSION [None]
  - BLOOD PRESSURE DIASTOLIC DECREASED [None]
  - ORTHOPNOEA [None]
  - OEDEMA PERIPHERAL [None]
  - BODY TEMPERATURE INCREASED [None]
  - FATIGUE [None]
  - BLOOD ALKALINE PHOSPHATASE INCREASED [None]
